FAERS Safety Report 10254558 (Version 1)
Quarter: 2014Q2

REPORT INFORMATION
  Report Type: Spontaneous
  Country: US (occurrence: None)
  Receive Date: 20140620
  Receipt Date: 20140620
  Transmission Date: 20141212
  Serious: No
  Sender: FDA-Public Use
  Company Number: None

PATIENT
  Age: 91 Year
  Sex: Male
  Weight: 76.8 kg

DRUGS (1)
  1. AMOXICILLIN/CLAVULANATE [Suspect]
     Indication: UPPER RESPIRATORY TRACT INFECTION
     Dosage: 1 TAB, BID, PO
     Route: 048
     Dates: start: 20140327, end: 20140415

REACTIONS (1)
  - Pruritus [None]
